FAERS Safety Report 11512011 (Version 2)
Quarter: 2015Q3

REPORT INFORMATION
  Report Type: Report from Study
  Country: JP (occurrence: JP)
  Receive Date: 20150916
  Receipt Date: 20150921
  Transmission Date: 20151125
  Serious: Yes (Hospitalization)
  Sender: FDA-Public Use
  Company Number: JP-TAKEDA-2015TJP017063

PATIENT
  Age: 22 Year
  Sex: Male
  Weight: 53.8 kg

DRUGS (12)
  1. BLINDED VEDOLIZUMAB [Suspect]
     Active Substance: VEDOLIZUMAB
     Indication: CROHN^S DISEASE
     Dosage: MLN0002 300MG OR PLACEBO
     Route: 041
     Dates: start: 20150813, end: 20150827
  2. LAC-B GRANULAR POWDER N [Concomitant]
     Indication: CROHN^S DISEASE
     Dosage: 1 G, TID
     Route: 048
     Dates: start: 20150804
  3. REBAMIPIDE [Concomitant]
     Active Substance: REBAMIPIDE
     Indication: CROHN^S DISEASE
     Dosage: 100 MG, BID
     Route: 048
     Dates: start: 20150514
  4. ZEFNART [Concomitant]
     Indication: TINEA PEDIS
     Dosage: UNK, QD
     Route: 062
  5. MIYA-BM [Concomitant]
     Active Substance: CLOSTRIDIUM BUTYRICUM SPORES STRAIN M-55
     Indication: CROHN^S DISEASE
     Dosage: 1 DF, TID
     Route: 048
     Dates: start: 20140619
  6. PLACEBO [Suspect]
     Active Substance: UNSPECIFIED INGREDIENT
     Indication: CROHN^S DISEASE
     Dosage: MLN0002 300MG OR PLACEBO
     Route: 041
     Dates: start: 20150813, end: 20150827
  7. PENTASA [Concomitant]
     Active Substance: MESALAMINE
     Indication: CROHN^S DISEASE
     Dosage: 1000 MG, TID
     Route: 048
     Dates: start: 20090731
  8. ELENTAL [Concomitant]
     Active Substance: MINERALS\VITAMINS
     Indication: CROHN^S DISEASE
     Dosage: 80 G, BID
     Route: 048
     Dates: start: 20150312
  9. ALBUMIN TANNATE [Concomitant]
     Active Substance: ALBUMIN BOVINE\TANNIC ACID
     Indication: CROHN^S DISEASE
     Dosage: UNK UNK, TID
     Route: 048
     Dates: start: 20150804
  10. CALONAL [Concomitant]
     Active Substance: ACETAMINOPHEN
     Indication: CROHN^S DISEASE
     Dosage: 2 G, UNK
     Route: 048
     Dates: start: 20140327
  11. CLENAFIN [Concomitant]
     Indication: TINEA PEDIS
     Dosage: UNK, QD
     Route: 062
  12. TERRA-CORTRIL                      /00163101/ [Concomitant]
     Indication: TINEA PEDIS
     Dosage: UNK
     Route: 062

REACTIONS (1)
  - Crohn^s disease [Not Recovered/Not Resolved]

NARRATIVE: CASE EVENT DATE: 20150907
